FAERS Safety Report 4883640-5 (Version None)
Quarter: 2006Q1

REPORT INFORMATION
  Report Type: 
  Country: None (occurrence: None)
  Receive Date: 20060113
  Receipt Date: 20060103
  Transmission Date: 20060701
  Serious: Yes (Death, Hospitalization)
  Sender: FDA-Public Use
  Company Number: US200601000411

PATIENT
  Age: 87 Year
  Sex: Female

DRUGS (1)
  1. ZYPREXA [Suspect]
     Dates: start: 20050101

REACTIONS (1)
  - MYOCARDIAL INFARCTION [None]
